FAERS Safety Report 7499647-8 (Version None)
Quarter: 2011Q2

REPORT INFORMATION
  Report Type: 
  Country: None (occurrence: None)
  Receive Date: 20110524
  Receipt Date: 20110518
  Transmission Date: 20111010
  Serious: Yes (Other)
  Sender: FDA-Public Use
  Company Number: IN-BAXTER-2011BH014247

PATIENT
  Age: 48 Year
  Sex: Male

DRUGS (1)
  1. DIANEAL PD-2 W/ DEXTROSE 1.5% [Suspect]
     Indication: PERITONEAL DIALYSIS
     Route: 033
     Dates: start: 20110401

REACTIONS (2)
  - MALNUTRITION [None]
  - PERITONITIS [None]
